FAERS Safety Report 8830399 (Version 1)
Quarter: 2012Q4

REPORT INFORMATION
  Report Type: Spontaneous
  Country: US (occurrence: None)
  Receive Date: 20121004
  Receipt Date: 20121004
  Transmission Date: 20130627
  Serious: Yes (Death, Hospitalization)
  Sender: FDA-Public Use
  Company Number: AUR-APL-2012-04202

PATIENT
  Age: 79 Year

DRUGS (3)
  1. CLOPIDOGREL [Suspect]
     Indication: ATRIAL FIBRILLATION
  2. DABIGATRAN [Suspect]
     Indication: ATRIAL FIBRILLATION
  3. ASPIRIN [Suspect]
     Indication: ATRIAL FIBRILLATION

REACTIONS (15)
  - Melaena [None]
  - Chest pain [None]
  - Epistaxis [None]
  - Pulseless electrical activity [None]
  - Bradycardia [None]
  - Cardiac arrest [None]
  - Blood pressure decreased [None]
  - Haemoglobin decreased [None]
  - Haematocrit decreased [None]
  - Blood bicarbonate decreased [None]
  - Blood urea increased [None]
  - Blood creatinine increased [None]
  - Creatinine renal clearance decreased [None]
  - Activated partial thromboplastin time prolonged [None]
  - Prothrombin time prolonged [None]
